FAERS Safety Report 7900764-6 (Version None)
Quarter: 2011Q4

REPORT INFORMATION
  Report Type: 
  Country: None (occurrence: None)
  Receive Date: 20111108
  Receipt Date: 20111102
  Transmission Date: 20120403
  Serious: Yes (Hospitalization)
  Sender: FDA-Public Use
  Company Number: NL-AMGEN-NLDCT2011051281

PATIENT
  Age: 64 Year
  Sex: Female

DRUGS (6)
  1. FLUOROURACIL [Concomitant]
     Dosage: UNK
     Route: 042
     Dates: start: 20110624
  2. CYCLOPHOSPHAMIDE [Concomitant]
     Dosage: UNK
     Route: 042
     Dates: start: 20110624
  3. BLINDED DENOSUMAB [Suspect]
     Indication: BREAST CANCER
     Dosage: UNK UNK, Q3WK
     Route: 058
     Dates: start: 20110715
  4. BLINDED PLACEBO [Suspect]
     Indication: BREAST CANCER
     Dosage: UNK UNK, Q3WK
     Route: 058
     Dates: start: 20110715
  5. EPIRUBICIN [Concomitant]
     Dosage: UNK
     Route: 042
     Dates: start: 20110624
  6. TAXOTERE [Concomitant]
     Dosage: UNK
     Route: 042
     Dates: start: 20110624

REACTIONS (1)
  - PYREXIA [None]
